FAERS Safety Report 10584820 (Version 2)
Quarter: 2014Q4

REPORT INFORMATION
  Report Type: Report from Study
  Country: AU (occurrence: AU)
  Receive Date: 20141114
  Receipt Date: 20141201
  Transmission Date: 20150529
  Serious: Yes (Other)
  Sender: FDA-Public Use
  Company Number: AU-BRISTOL-MYERS SQUIBB COMPANY-21559075

PATIENT
  Age: 56 Year
  Sex: Female

DRUGS (8)
  1. FOLIC ACID. [Concomitant]
     Active Substance: FOLIC ACID
  2. ASPIRIN. [Concomitant]
     Active Substance: ASPIRIN
  3. NIZAX [Concomitant]
  4. ORENCIA [Suspect]
     Active Substance: ABATACEPT
     Indication: RHEUMATOID ARTHRITIS
     Route: 058
     Dates: start: 20120323
  5. METHOTREXATE [Concomitant]
     Active Substance: METHOTREXATE
  6. NEXIUM [Concomitant]
     Active Substance: ESOMEPRAZOLE MAGNESIUM
  7. OXYNORM [Concomitant]
     Active Substance: OXYCODONE HYDROCHLORIDE
  8. DOTHIEPIN [Concomitant]
     Active Substance: DOTHIEPIN\DOTHIEPIN HYDROCHLORIDE

REACTIONS (2)
  - Vasculitis [Unknown]
  - Bronchiectasis [Unknown]
